FAERS Safety Report 19573739 (Version 1)
Quarter: 2021Q3

REPORT INFORMATION
  Report Type: Spontaneous
  Country: BG (occurrence: BG)
  Receive Date: 20210717
  Receipt Date: 20210717
  Transmission Date: 20211014
  Serious: No
  Sender: FDA-Public Use
  Company Number: BG-LUPIN PHARMACEUTICALS INC.-2021-12030

PATIENT
  Age: 41 Year
  Sex: Female

DRUGS (7)
  1. PREDNISOLONE. [Suspect]
     Active Substance: PREDNISOLONE
     Indication: STEROID THERAPY
     Dosage: 7.5 MILLIGRAM, QD
     Route: 065
  2. FLUDROCORTISONE [Suspect]
     Active Substance: FLUDROCORTISONE
     Indication: STEROID THERAPY
     Dosage: 0.1 MILLIGRAM, DISCONTINUED AFTER DELIVERY
     Route: 065
  3. LEVOTHYROXINE. [Suspect]
     Active Substance: LEVOTHYROXINE
     Indication: AUTOIMMUNE THYROIDITIS
     Dosage: 50 MICROGRAM, QD
     Route: 065
  4. PREDNISOLONE. [Suspect]
     Active Substance: PREDNISOLONE
     Dosage: 20 MILLIGRAM, QD
     Route: 065
  5. PREDNISOLONE. [Suspect]
     Active Substance: PREDNISOLONE
     Dosage: 7.5 MILLIGRAM, QD
     Route: 065
  6. LEVOTHYROXINE. [Suspect]
     Active Substance: LEVOTHYROXINE
     Dosage: UNK, UP TO 20 OF WEEKS GESTATION, THE DOSE OF LEVOTHYROXINE WAS ADJUSTED SMOOTHLY (EXACT DOSE NOT ST
     Route: 065
  7. SALINE [Suspect]
     Active Substance: SODIUM CHLORIDE
     Indication: FLUID IMBALANCE
     Dosage: UNK
     Route: 065

REACTIONS (2)
  - Exposure during pregnancy [Unknown]
  - Normal newborn [Unknown]
